FAERS Safety Report 5294937-1 (Version None)
Quarter: 2007Q2

REPORT INFORMATION
  Report Type: 
  Country: None (occurrence: None)
  Receive Date: 20070412
  Receipt Date: 20060315
  Transmission Date: 20071010
  Serious: Yes (Other)
  Sender: FDA-Public Use
  Company Number: 200611466EU

PATIENT
  Sex: Male

DRUGS (2)
  1. NICORETTE [Suspect]
     Indication: SMOKING CESSATION THERAPY
     Dosage: 25GUM PER DAY
     Route: 002
     Dates: start: 20020101
  2. NICORETTE [Suspect]
     Route: 002

REACTIONS (2)
  - DEPENDENCE [None]
  - OVERDOSE [None]
